FAERS Safety Report 9530171 (Version 1)
Quarter: 2013Q3

REPORT INFORMATION
  Report Type: Report from Study
  Country: FI (occurrence: FI)
  Receive Date: 20130917
  Receipt Date: 20130917
  Transmission Date: 20140515
  Serious: Yes (Other)
  Sender: FDA-Public Use
  Company Number: PHHY2013FI102569

PATIENT
  Sex: 0

DRUGS (4)
  1. TEGRETOL [Suspect]
     Dosage: MATERNAL DOSE 400 MG DAILY
     Route: 064
  2. VALPROIC ACID [Suspect]
     Dosage: UNK
     Route: 064
  3. TOPIRAMATE [Suspect]
     Dosage: UNK
     Route: 064
  4. CLOBAZAM [Suspect]
     Dosage: UNK UKN, UNK
     Route: 064

REACTIONS (4)
  - Congenital bowing of long bones [Unknown]
  - Craniosynostosis [Unknown]
  - Ventricular septal defect [Unknown]
  - Foetal exposure during pregnancy [Unknown]
